FAERS Safety Report 9016960 (Version 2)
Quarter: 2013Q1

REPORT INFORMATION
  Report Type: Spontaneous
  Country: FR (occurrence: FR)
  Receive Date: 20130117
  Receipt Date: 20130204
  Transmission Date: 20140127
  Serious: Yes (Other)
  Sender: FDA-Public Use
  Company Number: PHHY2013FR003174

PATIENT
  Sex: 0

DRUGS (2)
  1. GILENYA [Suspect]
     Indication: MULTIPLE SCLEROSIS
     Dosage: 0.5 MG, DAILY
     Route: 048
     Dates: start: 20120607, end: 201211
  2. GILENYA [Suspect]
     Dosage: 0.5 MG, EVERY OTHER DAY
     Dates: start: 201211

REACTIONS (2)
  - Maculopathy [Unknown]
  - Inappropriate schedule of drug administration [Unknown]
